FAERS Safety Report 13152263 (Version 2)
Quarter: 2017Q1

REPORT INFORMATION
  Report Type: Spontaneous
  Country: FR (occurrence: FR)
  Receive Date: 20170125
  Receipt Date: 20170306
  Transmission Date: 20170428
  Serious: Yes (Hospitalization, Other)
  Sender: FDA-Public Use
  Company Number: FR-GILEAD-2017-0255012

PATIENT
  Age: 53 Year
  Sex: Female
  Weight: 107 kg

DRUGS (14)
  1. AMLOR [Concomitant]
     Active Substance: AMLODIPINE BESYLATE
     Dosage: 5 MG, QD
     Route: 048
  2. BACTRIM [Suspect]
     Active Substance: SULFAMETHOXAZOLE\TRIMETHOPRIM
     Dosage: UNK
     Route: 048
     Dates: end: 201702
  3. RITUXIMAB [Concomitant]
     Active Substance: RITUXIMAB
     Indication: CHROMOSOMAL DELETION
  4. AVLOCARDYL                         /00030001/ [Concomitant]
     Active Substance: PROPRANOLOL HYDROCHLORIDE
     Dosage: 40 MG, QD
     Route: 048
  5. BACTRIM [Suspect]
     Active Substance: SULFAMETHOXAZOLE\TRIMETHOPRIM
     Indication: PROPHYLAXIS
     Dosage: UNK, QD
     Route: 048
     Dates: start: 201612, end: 20170112
  6. ZYDELIG [Suspect]
     Active Substance: IDELALISIB
     Indication: CHRONIC LYMPHOCYTIC LEUKAEMIA
     Dosage: 150 MG, UNK
     Route: 065
     Dates: start: 20161115, end: 20170112
  7. ZELITREX [Suspect]
     Active Substance: VALACYCLOVIR HYDROCHLORIDE
     Indication: PROPHYLAXIS
     Dosage: 500 MG, QD
     Route: 048
     Dates: start: 201612, end: 20170112
  8. FLECAINE [Concomitant]
     Active Substance: FLECAINIDE
     Dosage: 200 MG, QD
     Route: 048
  9. ZYDELIG [Suspect]
     Active Substance: IDELALISIB
     Indication: CHROMOSOMAL DELETION
     Dosage: 100 MG, BID
     Route: 065
     Dates: start: 20170126, end: 201702
  10. ZELITREX [Suspect]
     Active Substance: VALACYCLOVIR HYDROCHLORIDE
     Dosage: UNK
     Route: 048
     Dates: end: 201702
  11. RITUXIMAB [Concomitant]
     Active Substance: RITUXIMAB
     Indication: CHRONIC LYMPHOCYTIC LEUKAEMIA
     Dosage: UNK
  12. METFORMINE [Concomitant]
     Active Substance: METFORMIN HYDROCHLORIDE
     Dosage: 1 G, QD
     Route: 048
  13. ESIDREX [Concomitant]
     Active Substance: HYDROCHLOROTHIAZIDE
     Dosage: 12.5 MG, QD
     Route: 048
  14. RAMIPRIL. [Concomitant]
     Active Substance: RAMIPRIL
     Dosage: 10 MG, QD
     Route: 048

REACTIONS (2)
  - Hepatocellular injury [Recovering/Resolving]
  - Off label use [Recovered/Resolved]

NARRATIVE: CASE EVENT DATE: 20170109
